FAERS Safety Report 10716636 (Version 1)
Quarter: 2015Q1

REPORT INFORMATION
  Report Type: Spontaneous
  Country: US (occurrence: US)
  Receive Date: 20150116
  Receipt Date: 20150116
  Transmission Date: 20150721
  Serious: Yes (Hospitalization)
  Sender: FDA-Public Use
  Company Number: US-BRISTOL-MYERS SQUIBB COMPANY-BMS-2015-000090

PATIENT
  Age: 67 Year
  Sex: Male
  Weight: 90.7 kg

DRUGS (2)
  1. METFORMIN [Concomitant]
     Active Substance: METFORMIN HYDROCHLORIDE
  2. BYETTA [Suspect]
     Active Substance: EXENATIDE
     Indication: TYPE 2 DIABETES MELLITUS
     Dosage: 10 ?G, BID
     Route: 058

REACTIONS (4)
  - Product quality issue [None]
  - Drug dose omission [None]
  - Prostatic disorder [Unknown]
  - Mass [None]

NARRATIVE: CASE EVENT DATE: 20141215
